FAERS Safety Report 8990693 (Version 1)
Quarter: 2012Q4

REPORT INFORMATION
  Report Type: Spontaneous
  Country: US (occurrence: None)
  Receive Date: 20121226
  Receipt Date: 20121226
  Transmission Date: 20130627
  Serious: Yes (Other)
  Sender: FDA-Public Use
  Company Number: None

PATIENT
  Age: 62 Year
  Sex: Male
  Weight: 88 kg

DRUGS (1)
  1. GAMUNEX [Suspect]
     Dosage: 85 G EVERY 3 WEEKS IV DRIP
     Route: 041
     Dates: start: 20120915, end: 20121123

REACTIONS (1)
  - Muscle spasms [None]
